FAERS Safety Report 18472503 (Version 2)
Quarter: 2024Q1

REPORT INFORMATION
  Report Type: Spontaneous
  Country: GB (occurrence: GB)
  Receive Date: 20201106
  Receipt Date: 20240109
  Transmission Date: 20240410
  Serious: Yes (Hospitalization, Other)
  Sender: FDA-Public Use
  Company Number: GB-AUROBINDO-AUR-APL-2020-054025

PATIENT
  Age: 37 Year
  Sex: Female

DRUGS (3)
  1. LAMIVUDINE [Suspect]
     Active Substance: LAMIVUDINE
     Indication: Genital herpes
     Dosage: UNK
     Route: 065
     Dates: start: 200403
  2. EFAVIRENZ [Suspect]
     Active Substance: EFAVIRENZ
     Indication: Genital herpes
     Dosage: UNK
     Route: 065
     Dates: start: 200403
  3. TENOFOVIR DISOPROXIL [Suspect]
     Active Substance: TENOFOVIR DISOPROXIL
     Indication: Genital herpes
     Dosage: UNK
     Route: 065
     Dates: start: 200403

REACTIONS (3)
  - Castleman^s disease [Recovered/Resolved]
  - Immune reconstitution inflammatory syndrome [Recovered/Resolved]
  - Angioedema [Recovered/Resolved]
